FAERS Safety Report 4635909-7 (Version None)
Quarter: 2005Q2

REPORT INFORMATION
  Report Type: 
  Country: None (occurrence: None)
  Receive Date: 20050415
  Receipt Date: 20050131
  Transmission Date: 20051028
  Serious: Yes (Disabling)
  Sender: FDA-Public Use
  Company Number: NL-BRISTOL-MYERS SQUIBB COMPANY-12843819

PATIENT
  Age: 69 Year
  Sex: Male
  Weight: 64 kg

DRUGS (8)
  1. CARBOPLATIN [Suspect]
     Indication: MESOTHELIOMA
     Dosage: THERAPY FROM 24-AUG-2004 TO 08-DEC-2004 (AUC-5)
     Route: 042
     Dates: start: 20041208, end: 20041208
  2. ALIMTA [Suspect]
     Indication: MESOTHELIOMA
     Route: 042
     Dates: start: 20041208, end: 20041208
  3. FOLIC ACID [Concomitant]
     Dosage: PER PROTOCOL
     Route: 048
     Dates: start: 20040812, end: 20041231
  4. VITAMIN B-12 [Concomitant]
     Dosage: PER PROTOCOL
     Route: 030
     Dates: start: 20040812, end: 20041103
  5. DEXAMETHASONE [Concomitant]
     Indication: PREMEDICATION
     Dosage: GIVEN ON DAY -1, DAY 0 AND DAY 1 OF EVERY CYCLE.
     Dates: start: 20040823, end: 20041209
  6. PARACETAMOL [Concomitant]
     Indication: CHEST PAIN
     Dates: start: 20040901
  7. SEVREDOL [Concomitant]
     Indication: CHEST PAIN
     Dates: start: 20041201
  8. LACTULOSE [Concomitant]
     Indication: CONSTIPATION
     Dates: start: 20041201

REACTIONS (2)
  - BLINDNESS UNILATERAL [None]
  - OPTIC NERVE INFARCTION [None]
